FAERS Safety Report 24572922 (Version 1)
Quarter: 2024Q4

REPORT INFORMATION
  Report Type: Spontaneous
  Country: US (occurrence: US)
  Receive Date: 20241101
  Receipt Date: 20241101
  Transmission Date: 20250114
  Serious: No
  Sender: Tarsus Pharmaceuticals
  Company Number: US-TARSUS PHARMACEUTICALS-TSP-US-2024-000499

PATIENT
  Age: 71 Year
  Sex: Female

DRUGS (2)
  1. XDEMVY [Suspect]
     Active Substance: LOTILANER
     Indication: Dry eye
     Dosage: 1 DROP INTO BOTH EYES TWICE A DAY
     Route: 047
  2. XDEMVY [Suspect]
     Active Substance: LOTILANER
     Indication: Demodex blepharitis

REACTIONS (1)
  - Drug ineffective [Unknown]
